FAERS Safety Report 4514066-1 (Version None)
Quarter: 2004Q4

REPORT INFORMATION
  Report Type: 
  Country: None (occurrence: None)
  Receive Date: 20041130
  Receipt Date: 20041118
  Transmission Date: 20050328
  Serious: Yes (Other)
  Sender: FDA-Public Use
  Company Number: GB-GLAXOSMITHKLINE-B0357729A

PATIENT

DRUGS (1)
  1. IMIGRAN [Suspect]

REACTIONS (2)
  - CATARACT [None]
  - DRUG EXPOSURE DURING PREGNANCY [None]
